FAERS Safety Report 6079680-3 (Version None)
Quarter: 2009Q1

REPORT INFORMATION
  Report Type: 
  Country: None (occurrence: None)
  Receive Date: 20090211
  Receipt Date: 20090127
  Transmission Date: 20090719
  Serious: Yes (Hospitalization)
  Sender: FDA-Public Use
  Company Number: 2009S1001670

PATIENT
  Age: 12 Day
  Sex: Male

DRUGS (2)
  1. LAMOTRIGINE [Suspect]
     Indication: POISONING DELIBERATE
     Dosage: ;UNKNOWN;
  2. PARACETAMOL (PARACETAMOL) [Suspect]
     Indication: POISONING DELIBERATE
     Dosage: ;UNKNOWN;

REACTIONS (8)
  - CHILD ABUSE [None]
  - DRUG LEVEL INCREASED [None]
  - DYSKINESIA [None]
  - FACTITIOUS DISORDER [None]
  - GRAND MAL CONVULSION [None]
  - HAEMATEMESIS [None]
  - POISONING DELIBERATE [None]
  - THERAPEUTIC AGENT TOXICITY [None]
